FAERS Safety Report 10105083 (Version 2)
Quarter: 2014Q2

REPORT INFORMATION
  Report Type: Other
  Country: US (occurrence: US)
  Receive Date: 20140424
  Receipt Date: 20140626
  Transmission Date: 20141212
  Serious: Yes (Death, Hospitalization, Other)
  Sender: FDA-Public Use
  Company Number: US-GSKPPD-2014GSK000628

PATIENT
  Age: 66 Year
  Sex: Female
  Weight: 99.43 kg

DRUGS (6)
  1. AVANDIA [Suspect]
     Indication: DIABETES MELLITUS
     Route: 048
  2. LASIX [Concomitant]
  3. PLAVIX [Concomitant]
  4. NORVASC [Concomitant]
  5. NITROGLYCERINE [Concomitant]
  6. ASPIRIN [Concomitant]
     Route: 048

REACTIONS (2)
  - Myocardial infarction [Fatal]
  - Cardiac failure congestive [None]
